FAERS Safety Report 6260936-6 (Version None)
Quarter: 2009Q3

REPORT INFORMATION
  Report Type: 
  Country: None (occurrence: None)
  Receive Date: 20090707
  Receipt Date: 20090707
  Transmission Date: 20100115
  Serious: Yes (Hospitalization)
  Sender: FDA-Public Use
  Company Number: None

PATIENT
  Sex: Female
  Weight: 147 kg

DRUGS (2)
  1. VANCOMYCIN [Suspect]
     Indication: DEVICE RELATED INFECTION
     Dosage: 2 GM Q 12 HRS IV @ 9 PM
     Route: 042
     Dates: start: 20090704
  2. ERTAPENEM 2 GM [Suspect]
     Dosage: 2 GM Q 24 HRS IV
     Route: 042

REACTIONS (4)
  - BLISTER [None]
  - DYSPNOEA [None]
  - REFUSAL OF TREATMENT BY PATIENT [None]
  - URTICARIA [None]
